FAERS Safety Report 8080827-8 (Version None)
Quarter: 2012Q1

REPORT INFORMATION
  Report Type: 
  Country: None (occurrence: None)
  Receive Date: 20120130
  Receipt Date: 20120119
  Transmission Date: 20120608
  Serious: Yes (Hospitalization)
  Sender: FDA-Public Use
  Company Number: CZ-ROCHE-1031797

PATIENT
  Sex: Male

DRUGS (49)
  1. METHYLPREDNISOLONE [Suspect]
     Indication: DIFFUSE LARGE B-CELL LYMPHOMA
     Route: 042
     Dates: start: 20110729, end: 20110801
  2. OMEPRAZOLE [Concomitant]
     Route: 048
     Dates: start: 20110512
  3. FILGRASTIM [Concomitant]
     Route: 058
     Dates: start: 20110802, end: 20110814
  4. AMOXICILLIN AND CLAVULANATE POTASSIUM [Concomitant]
     Route: 048
     Dates: start: 20110812, end: 20110822
  5. PREDNISONE TAB [Suspect]
     Dosage: LAST DOSE PRIOR TO SAE 08/JUN/2011
     Dates: start: 20110608
  6. PREDNISONE TAB [Suspect]
     Dosage: LAST DOSE PRIOR TO SAE 09/JUN/2011
     Dates: start: 20110609
  7. PREDNISONE TAB [Suspect]
     Dosage: LAST DOSE PRIOR TO SAE 10/JUN/2011
     Dates: start: 20110610
  8. METHOTREXATE [Suspect]
     Indication: DIFFUSE LARGE B-CELL LYMPHOMA
     Dosage: LAST DOSE PRIOR TO SAE 03/JUN/2011
     Dates: start: 20110603
  9. ETOPOSIDE [Suspect]
     Indication: DIFFUSE LARGE B-CELL LYMPHOMA
     Dosage: LAST DOSE PRIOR TO SAE 01/AUG/2011
     Route: 042
     Dates: start: 20110729
  10. ACETAMINOPHEN [Concomitant]
     Route: 048
     Dates: start: 20110630, end: 20110630
  11. KALIUM CHLORATUM [Concomitant]
     Route: 048
     Dates: start: 20110603, end: 20110607
  12. METOCLOPRAMIDE [Concomitant]
     Dates: start: 20110603, end: 20110610
  13. ACYCLOVIR [Concomitant]
     Route: 048
     Dates: start: 20110512
  14. VINCRISTINE [Suspect]
     Dosage: LAST DOSE PRIOR TO SAE 08 JUL 2011
     Route: 042
     Dates: start: 20110728
  15. COTRIM [Concomitant]
     Route: 048
     Dates: start: 20110512
  16. MOZOBIL [Concomitant]
     Route: 058
     Dates: start: 20110814, end: 20110814
  17. MABTHERA [Suspect]
     Dosage: LAST DOSE PRIOR TO SAE 30/JUN/2011
     Route: 042
     Dates: start: 20110630
  18. VINCRISTINE [Suspect]
     Indication: DIFFUSE LARGE B-CELL LYMPHOMA
     Dosage: LAST DOSE PRIOR TO SAE 30/JUN/2011
     Route: 042
     Dates: start: 20110630
  19. CYCLOPHOSPHAMIDE [Suspect]
     Indication: DIFFUSE LARGE B-CELL LYMPHOMA
     Dosage: LAST DOSE PRIOR TO SAE 03/JUN/2011
     Route: 042
     Dates: start: 20110603
  20. DOXORUBICIN HCL [Suspect]
     Dosage: LAST DOSE PRIOR TO SAE 30/JUN/2011
     Route: 042
     Dates: start: 20110630
  21. METOCLOPRAMIDE [Concomitant]
     Route: 048
     Dates: start: 20110630, end: 20110707
  22. TAMSULOSIN HYDROCHLORIDE [Concomitant]
     Route: 048
  23. METAMIZOLUM NATRICUM [Concomitant]
     Route: 048
     Dates: start: 20110810, end: 20110810
  24. METAMIZOLUM NATRICUM [Concomitant]
     Dates: start: 20110816, end: 20110816
  25. CYCLOPHOSPHAMIDE [Suspect]
     Dosage: LAST DOSE PRIOR TO SAE 30/JUN/2011
     Route: 042
     Dates: start: 20110630
  26. PREDNISONE TAB [Suspect]
     Dosage: LAST DOSE PRIOR TO SAE 06/JUL/2011
     Route: 048
     Dates: start: 20110706
  27. NEULASTA [Concomitant]
     Route: 058
     Dates: start: 20110604, end: 20110604
  28. ALLOPURINOL [Concomitant]
     Route: 048
     Dates: start: 20110630, end: 20110704
  29. PREDNISONE TAB [Suspect]
     Dosage: LAST DOSE PRIOR TO SAE 05/JUL/2011
     Route: 048
     Dates: start: 20110705
  30. PREDNISONE TAB [Suspect]
     Dosage: LAST DOSE PRIOR TO SAE 07/JUN/2011
     Route: 048
     Dates: start: 20110603
  31. CISPLATIN [Suspect]
     Indication: DIFFUSE LARGE B-CELL LYMPHOMA
     Dosage: LAST DOSE PRIOR TO SAE 01/AUG/2011
     Route: 042
     Dates: start: 20110729
  32. BISULEPIN HYDROCHLORIDE [Concomitant]
     Route: 042
     Dates: start: 20110630, end: 20110630
  33. COTRIM [Concomitant]
     Route: 048
     Dates: start: 20110512
  34. FILGRASTIM [Concomitant]
     Route: 058
     Dates: start: 20110702, end: 20110714
  35. FLUCONAZOLE [Concomitant]
     Route: 048
     Dates: start: 20110512
  36. MABTHERA [Suspect]
     Indication: DIFFUSE LARGE B-CELL LYMPHOMA
     Dosage: LAST DOSE PRIOR TO SAE 03/JUN/2011
     Route: 042
     Dates: start: 20110602
  37. VINCRISTINE [Suspect]
     Dosage: LAST DOSE PRIOR TO SAE 3/JUN/2011
     Route: 042
     Dates: start: 20110603
  38. DOXORUBICIN HCL [Suspect]
     Indication: DIFFUSE LARGE B-CELL LYMPHOMA
     Dosage: LAST DOSE PRIOR TO SAE 03/JUN/2011
     Route: 042
     Dates: start: 20110603
  39. PREDNISONE TAB [Suspect]
     Dosage: LAST DOSE PRIOR TO SAE 07/JUL/2011
     Route: 048
     Dates: start: 20110707
  40. OMEPRAZOLE [Concomitant]
     Route: 048
     Dates: start: 20110630, end: 20110704
  41. KALIUM CHLORATUM [Concomitant]
     Route: 048
     Dates: start: 20110630, end: 20110704
  42. AMOXICILLIN AND CLAVULANATE POTASSIUM [Concomitant]
     Route: 042
     Dates: start: 20110809, end: 20110812
  43. METAMIZOLUM NATRICUM [Concomitant]
     Dates: start: 20110815, end: 20110815
  44. MABTHERA [Suspect]
     Dosage: LAST DOSE PRIOR TO SAE 08 JUL 2011
     Route: 042
     Dates: start: 20110728
  45. PREDNISONE TAB [Suspect]
     Indication: DIFFUSE LARGE B-CELL LYMPHOMA
     Dosage: LAST DOSE PRIOR TO SAE 04/JUL/2011
     Route: 048
     Dates: start: 20110630
  46. CYTARABINE [Suspect]
     Indication: DIFFUSE LARGE B-CELL LYMPHOMA
     Dosage: LAST DOSE PRIOR TO SAE 01/AUG/2011
     Route: 042
     Dates: start: 20110801
  47. UROMITEXAN [Concomitant]
     Route: 042
     Dates: start: 20110603, end: 20110630
  48. UROMITEXAN [Concomitant]
     Route: 048
     Dates: start: 20110630, end: 20110630
  49. PALONOSETRON [Concomitant]
     Route: 042
     Dates: start: 20110630, end: 20110630

REACTIONS (7)
  - BLOOD DISORDER [None]
  - CELLULITIS [None]
  - MUCOSAL INFLAMMATION [None]
  - FEBRILE NEUTROPENIA [None]
  - URINARY RETENTION [None]
  - ESCHERICHIA SEPSIS [None]
  - PROCTITIS [None]
